FAERS Safety Report 13337582 (Version 1)
Quarter: 2017Q1

REPORT INFORMATION
  Report Type: Spontaneous
  Country: US (occurrence: US)
  Receive Date: 20170314
  Receipt Date: 20170314
  Transmission Date: 20170428
  Serious: Yes (Death)
  Sender: FDA-Public Use
  Company Number: None

PATIENT
  Age: 64 Year
  Sex: Female

DRUGS (1)
  1. REVLIMID [Suspect]
     Active Substance: LENALIDOMIDE
     Indication: HODGKIN^S DISEASE
     Dosage: 10MG QDAY X21D/28 ORAL
     Route: 048
     Dates: start: 20130824, end: 20130913

REACTIONS (2)
  - Hodgkin^s disease [None]
  - Disease progression [None]

NARRATIVE: CASE EVENT DATE: 20131130
